FAERS Safety Report 8464037-8 (Version None)
Quarter: 2012Q2

REPORT INFORMATION
  Report Type: 
  Country: None (occurrence: None)
  Receive Date: 20120625
  Receipt Date: 20120613
  Transmission Date: 20120825
  Serious: No
  Sender: FDA-Public Use
  Company Number: US-ASTRAZENECA-2012SE39883

PATIENT
  Age: 61 Year
  Sex: Female

DRUGS (1)
  1. RHINOCORT [Suspect]
     Dosage: ONE SPRAY IN EACH NOSTRIL DAILY
     Route: 045

REACTIONS (2)
  - UPPER-AIRWAY COUGH SYNDROME [None]
  - OFF LABEL USE [None]
